FAERS Safety Report 9818562 (Version 2)
Quarter: 2014Q1

REPORT INFORMATION
  Report Type: Spontaneous
  Country: US (occurrence: US)
  Receive Date: 20140115
  Receipt Date: 20140115
  Transmission Date: 20141002
  Serious: Yes (Other)
  Sender: FDA-Public Use
  Company Number: US-GE HEALTHCARE MEDICAL DIAGNOSTICS-OSCN-PR-0806S-0364

PATIENT
  Sex: Female

DRUGS (5)
  1. OMNISCAN [Suspect]
     Indication: PRODUCT USED FOR UNKNOWN INDICATION
     Route: 042
     Dates: start: 20051206, end: 20051206
  2. MAGNEVIST [Suspect]
     Indication: PRODUCT USED FOR UNKNOWN INDICATION
     Route: 042
     Dates: start: 19960917, end: 19960917
  3. MAGNEVIST [Suspect]
     Indication: EYE PAIN
     Route: 042
     Dates: start: 19980724, end: 19980724
  4. MAGNEVIST [Suspect]
     Indication: CEREBROVASCULAR ACCIDENT
     Route: 042
     Dates: start: 19981113, end: 19981113
  5. MULTIHANCE [Suspect]
     Indication: PRODUCT USED FOR UNKNOWN INDICATION
     Route: 042
     Dates: start: 20061118, end: 20061118

REACTIONS (2)
  - Nephrogenic systemic fibrosis [Not Recovered/Not Resolved]
  - Induration [Not Recovered/Not Resolved]
